FAERS Safety Report 10731032 (Version 1)
Quarter: 2015Q1

REPORT INFORMATION
  Report Type: Spontaneous
  Country: US (occurrence: US)
  Receive Date: 20150122
  Receipt Date: 20150122
  Transmission Date: 20150721
  Serious: No
  Sender: FDA-Public Use
  Company Number: US-PFIZER INC-2015021772

PATIENT
  Age: 14 Year
  Sex: Male
  Weight: 64 kg

DRUGS (3)
  1. ABILIFY [Concomitant]
     Active Substance: ARIPIPRAZOLE
     Dosage: UNK
  2. QUILLIVANT XR [Suspect]
     Active Substance: METHYLPHENIDATE HYDROCHLORIDE
     Indication: ATTENTION DEFICIT/HYPERACTIVITY DISORDER
     Dosage: 5 ML, DAILY
     Dates: start: 201408, end: 2014
  3. QUILLIVANT XR [Suspect]
     Active Substance: METHYLPHENIDATE HYDROCHLORIDE
     Dosage: 10 ML, DAILY
     Dates: start: 2014

REACTIONS (4)
  - Anxiety [Unknown]
  - Drug effect decreased [Unknown]
  - Psychomotor hyperactivity [Unknown]
  - Educational problem [Unknown]

NARRATIVE: CASE EVENT DATE: 2014
